FAERS Safety Report 5385620-2 (Version None)
Quarter: 2007Q3

REPORT INFORMATION
  Report Type: 
  Country: None (occurrence: None)
  Receive Date: 20070712
  Receipt Date: 20070702
  Transmission Date: 20080115
  Serious: Yes (Other)
  Sender: FDA-Public Use
  Company Number: US-ASTRAZENECA-2007UW01931

PATIENT
  Age: 560 Month
  Sex: Male
  Weight: 118.2 kg

DRUGS (25)
  1. SEROQUEL [Suspect]
     Indication: DEPRESSION
     Dosage: 25 MG TO 100 MG
     Route: 048
     Dates: start: 20030218, end: 20040515
  2. SEROQUEL [Suspect]
     Indication: BIPOLAR DISORDER
     Dosage: 25 MG TO 100 MG
     Route: 048
     Dates: start: 20030218, end: 20040515
  3. ABILIFY [Concomitant]
     Dosage: 10/15 MG
     Dates: start: 20031105, end: 20040919
  4. CLOZARIL [Concomitant]
  5. DEPAKOTE [Concomitant]
     Dates: start: 19860101
  6. GLUCOPHAGE [Concomitant]
     Dates: start: 20030201
  7. GEODON [Concomitant]
     Dates: start: 20050715, end: 20050824
  8. HALDOL [Concomitant]
     Dates: start: 19991022
  9. LITHIUM CARBONATE [Concomitant]
     Dates: start: 19860101
  10. RISPERDAL [Concomitant]
     Dosage: 1 TO 3 MG
     Dates: start: 19991101, end: 20051109
  11. THORAZINE [Concomitant]
  12. AMBIEN [Concomitant]
     Dates: start: 20030530
  13. DESIPRAMINE HCL [Concomitant]
     Dates: start: 20060323
  14. DOXYCYCLINE [Concomitant]
     Dates: start: 20060323
  15. IMIPRAMINE [Concomitant]
     Dates: start: 20050415
  16. LEXAPRO [Concomitant]
     Dates: start: 20041020
  17. LAMICTAL [Concomitant]
     Dates: start: 20031002
  18. LUVOX [Concomitant]
     Dates: start: 20030330
  19. PAXIL CR [Concomitant]
     Dates: start: 20050124
  20. REQUIP [Concomitant]
     Dates: start: 20060208
  21. SYNTHROID [Concomitant]
     Dates: start: 20030530
  22. TRAZODONE HCL [Concomitant]
     Dates: start: 20030430
  23. STRATTERA [Concomitant]
     Dates: start: 20070315
  24. VISTARIL [Concomitant]
     Dates: start: 20060313
  25. UNKNOWN DRUG [Concomitant]
     Dates: start: 20030218

REACTIONS (9)
  - DIABETIC NEUROPATHY [None]
  - HYPOGLYCAEMIA [None]
  - HYPOTHYROIDISM [None]
  - LYME DISEASE [None]
  - POLYDIPSIA [None]
  - POLYURIA [None]
  - TREMOR [None]
  - TYPE 2 DIABETES MELLITUS [None]
  - WEIGHT INCREASED [None]
